FAERS Safety Report 5915582-8 (Version None)
Quarter: 2008Q4

REPORT INFORMATION
  Report Type: 
  Country: None (occurrence: None)
  Receive Date: 20081010
  Receipt Date: 20080903
  Transmission Date: 20090506
  Serious: No
  Sender: FDA-Public Use
  Company Number: A0745683A

PATIENT
  Age: 48 Year
  Sex: Female

DRUGS (2)
  1. TYKERB [Suspect]
     Indication: BREAST CANCER
     Route: 048
     Dates: start: 20070709, end: 20071112
  2. XELODA [Concomitant]

REACTIONS (1)
  - DISEASE PROGRESSION [None]
